FAERS Safety Report 6601856-4 (Version None)
Quarter: 2010Q1

REPORT INFORMATION
  Report Type: 
  Country: None (occurrence: None)
  Receive Date: 20100218
  Receipt Date: 20100215
  Transmission Date: 20100710
  Serious: Yes (Other)
  Sender: FDA-Public Use
  Company Number: 2009SP008143

PATIENT
  Age: 30 Year
  Sex: Female
  Weight: 67.7 kg

DRUGS (2)
  1. PEG-INTRON [Suspect]
     Indication: HEPATITIS C
     Dosage: 100 MCG;QW;SC
     Route: 058
     Dates: start: 20080519, end: 20081029
  2. REBETOL [Suspect]
     Indication: HEPATITIS C
     Dosage: 800 MG;QD;PO
     Route: 048
     Dates: start: 20080519, end: 20081029

REACTIONS (3)
  - ABORTION INDUCED [None]
  - OVARIAN NEOPLASM [None]
  - PREGNANCY [None]
